FAERS Safety Report 18793820 (Version 1)
Quarter: 2021Q1

REPORT INFORMATION
  Report Type: Spontaneous
  Country: IT (occurrence: IT)
  Receive Date: 20210127
  Receipt Date: 20210127
  Transmission Date: 20210419
  Serious: Yes (Disabling)
  Sender: FDA-Public Use
  Company Number: IT-009507513-2101ITA010842

PATIENT
  Age: 25 Year

DRUGS (1)
  1. PROPECIA [Suspect]
     Active Substance: FINASTERIDE
     Indication: SEBORRHOEIC ALOPECIA
     Dosage: 1 MILLIGRAM, QD, REPORTED FORMULATION: LOZENGE
     Route: 048
     Dates: start: 20121001, end: 20180901

REACTIONS (6)
  - Sexual dysfunction [Not Recovered/Not Resolved]
  - Amnesia [Not Recovered/Not Resolved]
  - Disturbance in attention [Not Recovered/Not Resolved]
  - Testicular pain [Not Recovered/Not Resolved]
  - Erectile dysfunction [Not Recovered/Not Resolved]
  - Depression [Not Recovered/Not Resolved]

NARRATIVE: CASE EVENT DATE: 20180901
